FAERS Safety Report 15332831 (Version 1)
Quarter: 2018Q4

REPORT INFORMATION
  Report Type: Spontaneous
  Country: FR (occurrence: FR)
  Receive Date: 20180830
  Receipt Date: 20180830
  Transmission Date: 20190204
  Serious: Yes (Hospitalization, Other)
  Sender: FDA-Public Use
  Company Number: FR-TEVA-2018-FR-948370

PATIENT
  Age: 82 Year
  Sex: Male
  Weight: 80 kg

DRUGS (7)
  1. ATORVASTATINE ARROW 10 MG, COATED TABLET [Interacting]
     Active Substance: ATORVASTATIN
     Indication: HYPERCHOLESTEROLAEMIA
     Dosage: 1 DOSAGE FORMS DAILY;
     Route: 048
     Dates: start: 2017, end: 20180206
  2. PANTOPRAZOLE ARROW 40 MG, GASTRO-RESISTANT TABLET [Concomitant]
     Indication: ULCER
     Dosage: 2 DOSAGE FORMS DAILY;
     Route: 048
     Dates: start: 20180202
  3. BACTRIM [Interacting]
     Active Substance: SULFAMETHOXAZOLE\TRIMETHOPRIM
     Indication: ANTIBIOTIC PROPHYLAXIS
     Dosage: 2 DOSAGE FORMS DAILY;
     Route: 048
     Dates: start: 20180130, end: 20180227
  4. ULTRAVIST [Interacting]
     Active Substance: IOPROMIDE
     Indication: COMPUTERISED TOMOGRAM ABDOMEN
     Route: 042
     Dates: start: 20180205, end: 20180205
  5. METFORMINE ARROW 500 MG,COATED TABLET [Suspect]
     Active Substance: METFORMIN HYDROCHLORIDE
     Indication: TYPE 2 DIABETES MELLITUS
     Dosage: 3 DOSAGE FORMS DAILY;
     Route: 048
     Dates: start: 20180127, end: 20180206
  6. BIPRETERAX [Interacting]
     Active Substance: INDAPAMIDE\PERINDOPRIL
     Indication: HYPERTENSION
     Dosage: 1 DOSAGE FORMS DAILY;
     Route: 048
     Dates: start: 2017, end: 20180227
  7. TAZOCILLINE [Interacting]
     Active Substance: PIPERACILLIN SODIUM\TAZOBACTAM SODIUM
     Indication: INFECTION
     Dosage: 12 GRAM DAILY;
     Route: 042
     Dates: start: 20180205

REACTIONS (3)
  - Drug interaction [Unknown]
  - Rhabdomyolysis [Recovered/Resolved]
  - Acute kidney injury [Recovered/Resolved]

NARRATIVE: CASE EVENT DATE: 20180205
